FAERS Safety Report 4887862-9 (Version None)
Quarter: 2006Q1

REPORT INFORMATION
  Report Type: 
  Country: None (occurrence: None)
  Receive Date: 20060123
  Receipt Date: 20050330
  Transmission Date: 20060701
  Serious: Yes (Disabling)
  Sender: FDA-Public Use
  Company Number: US-MERCK-0503USA05260

PATIENT
  Age: 61 Year
  Sex: Male
  Weight: 70 kg

DRUGS (23)
  1. LAMISIL [Concomitant]
     Route: 065
  2. AMBIEN [Concomitant]
     Route: 065
  3. VICOPROFEN [Concomitant]
     Route: 065
  4. CHLORZOXAZONE [Concomitant]
     Route: 065
  5. PROPOXYPHENE HYDROCHLORIDE [Concomitant]
     Route: 065
  6. METHYLPREDNISOLONE [Concomitant]
     Route: 065
  7. METHOCARBAMOL [Concomitant]
     Route: 065
  8. LEVAQUIN [Concomitant]
     Route: 065
  9. HYDROCODONE BITARTRATE [Concomitant]
     Route: 065
  10. CIALIS [Concomitant]
     Route: 065
  11. LEVITRA [Concomitant]
     Route: 065
  12. NYSTATIN [Concomitant]
     Route: 065
  13. CIPROFLOXACIN [Concomitant]
     Route: 065
  14. VIOXX [Suspect]
     Indication: PAIN MANAGEMENT
     Route: 048
     Dates: start: 20000410, end: 20040520
  15. VIOXX [Suspect]
     Route: 048
  16. VIOXX [Suspect]
     Indication: ARTHRALGIA
     Route: 048
     Dates: start: 20000410, end: 20040520
  17. VIOXX [Suspect]
     Route: 048
  18. ADVIL [Concomitant]
     Route: 065
  19. TYLENOL (CAPLET) [Concomitant]
     Route: 065
  20. ALEVE [Concomitant]
     Route: 065
  21. MOTRIN [Concomitant]
     Route: 065
  22. DIFLUCAN [Concomitant]
     Route: 065
  23. DOXYCYCLINE [Concomitant]
     Route: 065

REACTIONS (7)
  - ANXIETY [None]
  - ARTHRALGIA [None]
  - BACK PAIN [None]
  - BLOOD CHOLESTEROL INCREASED [None]
  - DEPRESSION [None]
  - MYOCARDIAL INFARCTION [None]
  - PAIN IN EXTREMITY [None]
